FAERS Safety Report 8985213 (Version 2)
Quarter: 2013Q1

REPORT INFORMATION
  Report Type: Spontaneous
  Country: JP (occurrence: JP)
  Receive Date: 20121226
  Receipt Date: 20130102
  Transmission Date: 20140127
  Serious: Yes (Hospitalization)
  Sender: FDA-Public Use
  Company Number: JP-JNJFOC-20121207535

PATIENT
  Age: 26 Year
  Sex: Male

DRUGS (2)
  1. ITRIZOLE [Suspect]
     Indication: TINEA PEDIS
     Route: 048
     Dates: start: 20120719, end: 20120913
  2. XYZAL [Concomitant]
     Indication: HYPERSENSITIVITY
     Route: 048

REACTIONS (2)
  - Hospitalisation [Unknown]
  - Alanine aminotransferase increased [Unknown]
